APPROVED DRUG PRODUCT: DETROL LA
Active Ingredient: TOLTERODINE TARTRATE
Strength: 4MG
Dosage Form/Route: CAPSULE, EXTENDED RELEASE;ORAL
Application: N021228 | Product #002 | TE Code: AB
Applicant: UPJOHN US 2 LLC
Approved: Dec 22, 2000 | RLD: Yes | RS: Yes | Type: RX